FAERS Safety Report 5339839-7 (Version None)
Quarter: 2007Q2

REPORT INFORMATION
  Report Type: 
  Country: None (occurrence: None)
  Receive Date: 20070405
  Receipt Date: 20061214
  Transmission Date: 20071010
  Serious: No
  Sender: FDA-Public Use
  Company Number: US200611000682

PATIENT
  Age: 51 Year
  Sex: Male

DRUGS (5)
  1. STRATTERA [Suspect]
     Indication: ATTENTION DEFICIT/HYPERACTIVITY DISORDER
     Dosage: SEE IMAGE
     Dates: start: 20060411, end: 20060529
  2. STRATTERA [Suspect]
     Indication: ATTENTION DEFICIT/HYPERACTIVITY DISORDER
     Dosage: SEE IMAGE
     Dates: start: 20060530
  3. CYMBALTA [Suspect]
     Indication: ANGER
     Dosage: 30 MG
     Dates: start: 20060707, end: 20061001
  4. CIALIS [Concomitant]
  5. CLONAZEPAM [Concomitant]

REACTIONS (4)
  - ECONOMIC PROBLEM [None]
  - ENERGY INCREASED [None]
  - INSOMNIA [None]
  - MANIA [None]
